FAERS Safety Report 25689729 (Version 1)
Quarter: 2025Q3

REPORT INFORMATION
  Report Type: Spontaneous
  Country: US (occurrence: None)
  Receive Date: 20250815
  Receipt Date: 20250815
  Transmission Date: 20251021
  Serious: Yes (Life-Threatening, Hospitalization)
  Sender: FDA-CTU
  Company Number: None

PATIENT
  Age: 57 Year
  Sex: Male

DRUGS (4)
  1. AMIODARONE [Suspect]
     Active Substance: AMIODARONE
  2. HEPARIN [Suspect]
     Active Substance: HEPARIN SODIUM
  3. AMIODARONE [Concomitant]
     Active Substance: AMIODARONE
  4. HEPARIN [Concomitant]
     Active Substance: HEPARIN SODIUM

REACTIONS (9)
  - Acute respiratory failure [None]
  - Ischaemic hepatitis [None]
  - Toxicity to various agents [None]
  - Infusion related reaction [None]
  - Haemofiltration [None]
  - Heparin-induced thrombocytopenia [None]
  - Drug hypersensitivity [None]
  - Cardiac failure congestive [None]
  - Hypervolaemia [None]

NARRATIVE: CASE EVENT DATE: 20240129
